FAERS Safety Report 15157275 (Version 1)
Quarter: 2018Q3

REPORT INFORMATION
  Report Type: Spontaneous
  Country: ES (occurrence: ES)
  Receive Date: 20180718
  Receipt Date: 20180718
  Transmission Date: 20181010
  Serious: Yes (Other)
  Sender: FDA-Public Use
  Company Number: ES-TEVA-2018-ES-928211

PATIENT
  Age: 62 Year
  Sex: Female

DRUGS (1)
  1. ATENOLOL 50 MG 60 COMPRIMIDOS [Suspect]
     Active Substance: ATENOLOL
     Dosage: 50 MILLIGRAM DAILY;
     Route: 048
     Dates: start: 20171124, end: 20180104

REACTIONS (2)
  - Asthenia [Unknown]
  - Bradycardia [Unknown]

NARRATIVE: CASE EVENT DATE: 201712
